FAERS Safety Report 14943634 (Version 20)
Quarter: 2022Q1

REPORT INFORMATION
  Report Type: Spontaneous
  Country: DE (occurrence: DE)
  Receive Date: 20180528
  Receipt Date: 20220223
  Transmission Date: 20220423
  Serious: Yes (Hospitalization)
  Sender: FDA-Public Use
  Company Number: PHHY2018DE007005

PATIENT
  Age: 62 Year
  Sex: Female
  Weight: 45 kg

DRUGS (149)
  1. ESIDRIX [Interacting]
     Active Substance: HYDROCHLOROTHIAZIDE
     Indication: Product used for unknown indication
     Dosage: 25 MG, QD (1-0-0-0)
     Route: 048
  2. POTASSIUM CHLORIDE [Interacting]
     Active Substance: POTASSIUM CHLORIDE
     Indication: Product used for unknown indication
     Dosage: 100 MG, QD (1-0-0-0)
     Route: 048
  3. HYDROCHLOROTHIAZIDE [Interacting]
     Active Substance: HYDROCHLOROTHIAZIDE
     Indication: Product used for unknown indication
     Dosage: 25 MG, QD (25 MG, QD (1-0-0-0)
     Route: 048
  4. HYDROCHLOROTHIAZIDE [Interacting]
     Active Substance: HYDROCHLOROTHIAZIDE
     Dosage: 25 MG, QD
     Route: 048
  5. FUROSEMIDE [Interacting]
     Active Substance: FUROSEMIDE
     Indication: Product used for unknown indication
     Dosage: 160 MG, QD
     Route: 048
  6. FUROSEMIDE [Interacting]
     Active Substance: FUROSEMIDE
     Dosage: 40 MG,QID
     Route: 048
  7. FUROSEMIDE [Interacting]
     Active Substance: FUROSEMIDE
     Dosage: 40 MG, Q6H
     Route: 048
  8. FUROSEMIDE [Interacting]
     Active Substance: FUROSEMIDE
     Dosage: 40 MG, QD
     Route: 048
  9. FUROSEMIDE [Interacting]
     Active Substance: FUROSEMIDE
     Dosage: 160 MG, QD
     Route: 048
  10. BENSERAZIDE\LEVODOPA [Interacting]
     Active Substance: BENSERAZIDE\LEVODOPA
     Indication: Product used for unknown indication
     Dosage: 100 MG, QD
     Route: 048
  11. BENSERAZIDE\LEVODOPA [Interacting]
     Active Substance: BENSERAZIDE\LEVODOPA
     Dosage: 1 DF, QD
     Route: 055
  12. BENSERAZIDE\LEVODOPA [Interacting]
     Active Substance: BENSERAZIDE\LEVODOPA
     Dosage: 100 MG, BID
     Route: 048
  13. BENSERAZIDE\LEVODOPA [Interacting]
     Active Substance: BENSERAZIDE\LEVODOPA
     Dosage: 1 DOSAGE FORM, QD
     Route: 055
  14. BENSERAZIDE\LEVODOPA [Interacting]
     Active Substance: BENSERAZIDE\LEVODOPA
     Dosage: 100 MG, QD
     Route: 048
  15. BENSERAZIDE\LEVODOPA [Interacting]
     Active Substance: BENSERAZIDE\LEVODOPA
     Dosage: 200 MG, Q12H
     Route: 048
  16. BENSERAZIDE\LEVODOPA [Interacting]
     Active Substance: BENSERAZIDE\LEVODOPA
     Dosage: 100 MG, QD
     Route: 048
  17. BENSERAZIDE\LEVODOPA [Interacting]
     Active Substance: BENSERAZIDE\LEVODOPA
     Dosage: 1 DOSAGE FORM, QD
     Route: 055
  18. BENSERAZIDE\LEVODOPA [Interacting]
     Active Substance: BENSERAZIDE\LEVODOPA
     Dosage: 100 MG, QD
     Route: 048
  19. LACTULOSE [Interacting]
     Active Substance: LACTULOSE
     Indication: Product used for unknown indication
     Dosage: 1 DOSAGE FORM, QD,  (1 MEASURING CUP)
     Route: 048
  20. LACTULOSE [Interacting]
     Active Substance: LACTULOSE
     Dosage: 1 DOSAGE FORM, QD
     Route: 048
  21. LACTULOSE [Interacting]
     Active Substance: LACTULOSE
     Dosage: 1 UNK
     Route: 048
  22. LACTULOSE [Interacting]
     Active Substance: LACTULOSE
     Dosage: 1 DOSAGE FORM, QD
     Route: 048
  23. LACTULOSE [Interacting]
     Active Substance: LACTULOSE
     Dosage: 1 DOSAGE FORM, QD
     Route: 048
  24. LACTULOSE [Interacting]
     Active Substance: LACTULOSE
     Dosage: 1 UNK
     Route: 048
  25. LACTULOSE [Interacting]
     Active Substance: LACTULOSE
     Dosage: 1 DOSAGE FORM, QD
     Route: 048
  26. LACTULOSE [Interacting]
     Active Substance: LACTULOSE
     Dosage: 1 DOSAGE FORM, QD
     Route: 048
  27. LACTULOSE [Interacting]
     Active Substance: LACTULOSE
     Dosage: 1 DOSAGE FORM, QD
     Route: 048
  28. METAMIZOLE SODIUM [Interacting]
     Active Substance: METAMIZOLE SODIUM
     Indication: Product used for unknown indication
     Dosage: 30 GTT, TID
     Route: 048
  29. METAMIZOLE SODIUM [Interacting]
     Active Substance: METAMIZOLE SODIUM
     Dosage: UNK DRP, Q8H (90 DROPS (30 DROPS IN 8 HOUR))
     Route: 048
  30. PANTOPRAZOLE [Interacting]
     Active Substance: PANTOPRAZOLE
     Indication: Product used for unknown indication
     Dosage: 40 MG,QD (1-0-0-0)
     Route: 048
  31. PANTOPRAZOLE [Interacting]
     Active Substance: PANTOPRAZOLE
     Dosage: 40 MG, QD
     Route: 048
  32. PANTOPRAZOLE [Interacting]
     Active Substance: PANTOPRAZOLE
     Dosage: 40 MG, QD
     Route: 048
  33. PANTOPRAZOLE [Interacting]
     Active Substance: PANTOPRAZOLE
     Dosage: 40 MG, QD
     Route: 048
  34. MAGNESIUM [Interacting]
     Active Substance: MAGNESIUM
     Indication: Product used for unknown indication
     Dosage: 2 DOSAGE FORM, BID, (UG/L)
     Route: 048
  35. ACETAMINOPHEN [Interacting]
     Active Substance: ACETAMINOPHEN
     Indication: Product used for unknown indication
     Dosage: 90 DF, QD
     Route: 048
  36. ACETAMINOPHEN [Interacting]
     Active Substance: ACETAMINOPHEN
     Dosage: 30 GTT, TID
     Route: 048
  37. ACETAMINOPHEN [Interacting]
     Active Substance: ACETAMINOPHEN
     Dosage: 1 DOSAGE FORM, QD
     Route: 048
  38. ACETAMINOPHEN [Interacting]
     Active Substance: ACETAMINOPHEN
     Dosage: 3 DOSAGE FORM, Q8H
     Route: 048
  39. ACETAMINOPHEN [Interacting]
     Active Substance: ACETAMINOPHEN
     Dosage: 90 DOSAGE FORM, QD
     Route: 048
  40. SIMVASTATIN [Interacting]
     Active Substance: SIMVASTATIN
     Indication: Product used for unknown indication
     Dosage: 40 MG, QD (0-0-1-0)
     Route: 048
  41. SIMVASTATIN [Interacting]
     Active Substance: SIMVASTATIN
     Dosage: 40 MG, QD
     Route: 048
  42. SPIRONOLACTONE [Interacting]
     Active Substance: SPIRONOLACTONE
     Indication: Product used for unknown indication
     Dosage: 100 MG, QD (1-0-0-0)
     Route: 048
  43. SPIRONOLACTONE [Interacting]
     Active Substance: SPIRONOLACTONE
     Dosage: 100 MG, BID
     Route: 048
  44. SPIRONOLACTONE [Interacting]
     Active Substance: SPIRONOLACTONE
     Dosage: 2 DF, QD
     Route: 048
  45. SPIRONOLACTONE [Interacting]
     Active Substance: SPIRONOLACTONE
     Dosage: 200 MG, BID
     Route: 048
  46. SPIRONOLACTONE [Interacting]
     Active Substance: SPIRONOLACTONE
     Dosage: 200 MG, Q12H
     Route: 048
  47. SPIRONOLACTONE [Interacting]
     Active Substance: SPIRONOLACTONE
     Dosage: 200 MG, Q12H
     Route: 048
  48. SPIRONOLACTONE [Interacting]
     Active Substance: SPIRONOLACTONE
     Dosage: 100 MG, QD
     Route: 048
  49. SPIRONOLACTONE [Interacting]
     Active Substance: SPIRONOLACTONE
     Dosage: 100 MG, QD
     Route: 048
  50. SPIRONOLACTONE [Interacting]
     Active Substance: SPIRONOLACTONE
     Dosage: 100 MG, QD
     Route: 048
  51. SPIRONOLACTONE [Interacting]
     Active Substance: SPIRONOLACTONE
     Dosage: 100 MG, QD
     Route: 048
  52. SPIRONOLACTONE [Interacting]
     Active Substance: SPIRONOLACTONE
     Dosage: 200 MG, Q12H
     Route: 048
  53. SPIRONOLACTONE [Interacting]
     Active Substance: SPIRONOLACTONE
     Dosage: 100 MG, QD
     Route: 048
  54. SPIRONOLACTONE [Interacting]
     Active Substance: SPIRONOLACTONE
     Dosage: 200 MG, Q12H
     Route: 048
  55. SPIRONOLACTONE [Interacting]
     Active Substance: SPIRONOLACTONE
     Dosage: 200 MG, QD
     Route: 048
  56. SPIRONOLACTONE [Interacting]
     Active Substance: SPIRONOLACTONE
     Dosage: 200 MG, Q12H
     Route: 048
  57. SPIRONOLACTONE [Interacting]
     Active Substance: SPIRONOLACTONE
     Dosage: 2 DOSAGE FORM, QD
     Route: 048
  58. SPIRONOLACTONE [Interacting]
     Active Substance: SPIRONOLACTONE
     Dosage: 200 MG, Q12H
     Route: 048
  59. SPIRONOLACTONE [Interacting]
     Active Substance: SPIRONOLACTONE
     Dosage: 200 MG, Q12H
     Route: 048
  60. SPIRONOLACTONE [Interacting]
     Active Substance: SPIRONOLACTONE
     Dosage: 100 MG, Q12H
     Route: 048
  61. SPIRONOLACTONE [Interacting]
     Active Substance: SPIRONOLACTONE
     Dosage: 100 MG, Q12H
     Route: 048
  62. FLUTICASONE PROPIONATE\SALMETEROL XINAFOATE [Interacting]
     Active Substance: FLUTICASONE PROPIONATE\SALMETEROL XINAFOATE
     Indication: Product used for unknown indication
     Dosage: 2 DF, QD
     Route: 048
  63. FLUTICASONE PROPIONATE\SALMETEROL XINAFOATE [Interacting]
     Active Substance: FLUTICASONE PROPIONATE\SALMETEROL XINAFOATE
     Dosage: 1 DF, QD
     Route: 048
  64. FLUTICASONE PROPIONATE\SALMETEROL XINAFOATE [Interacting]
     Active Substance: FLUTICASONE PROPIONATE\SALMETEROL XINAFOATE
     Dosage: 1 DOSAGE FORM, QD
     Route: 055
  65. FLUTICASONE PROPIONATE\SALMETEROL XINAFOATE [Interacting]
     Active Substance: FLUTICASONE PROPIONATE\SALMETEROL XINAFOATE
     Dosage: 2 DOSAGE FORM, QD
     Route: 055
  66. RAPAMUNE [Interacting]
     Active Substance: SIROLIMUS
     Indication: Product used for unknown indication
     Dosage: 1 MG, QD (1-0-0-0)
     Route: 048
  67. RAPAMUNE [Interacting]
     Active Substance: SIROLIMUS
     Dosage: 1 MG, QD (1 MG, QD)
     Route: 065
  68. RAPAMUNE [Interacting]
     Active Substance: SIROLIMUS
     Dosage: UNK UNK,UNK
     Route: 065
  69. AZATHIOPRINE [Interacting]
     Active Substance: AZATHIOPRINE
     Indication: Product used for unknown indication
     Dosage: 50 MG, QD
     Route: 048
  70. AZATHIOPRINE [Interacting]
     Active Substance: AZATHIOPRINE
     Dosage: 50 MG, QD
     Route: 048
  71. AZATHIOPRINE [Interacting]
     Active Substance: AZATHIOPRINE
     Dosage: 50 MG, QD
     Route: 048
  72. AZATHIOPRINE [Interacting]
     Active Substance: AZATHIOPRINE
     Dosage: 50 MG, QD
     Route: 048
  73. AZATHIOPRINE [Interacting]
     Active Substance: AZATHIOPRINE
     Dosage: 50 MG, QD
     Route: 048
  74. AZATHIOPRINE [Interacting]
     Active Substance: AZATHIOPRINE
     Dosage: 50 MG, QD
     Route: 048
  75. MAGNESIUM [Interacting]
     Active Substance: MAGNESIUM
     Indication: Product used for unknown indication
     Dosage: 2 UNK, QD, (2-0-0-0) (UG/L)
     Route: 048
  76. MAGNESIUM [Interacting]
     Active Substance: MAGNESIUM
     Dosage: 2 DF, QD
     Route: 048
  77. MAGNESIUM [Interacting]
     Active Substance: MAGNESIUM
     Dosage: UNK, BID
     Route: 048
  78. MAGNESIUM [Interacting]
     Active Substance: MAGNESIUM
     Dosage: 1 DF, QD
     Route: 055
  79. MAGNESIUM [Interacting]
     Active Substance: MAGNESIUM
     Dosage: 2 DOSAGE FORM, QD
     Route: 048
  80. MAGNESIUM [Interacting]
     Active Substance: MAGNESIUM
     Dosage: 2 DOSAGE FORM, QD
     Route: 048
  81. MAGNESIUM [Interacting]
     Active Substance: MAGNESIUM
     Dosage: 2 DOSAGE FORM, QD
     Route: 048
  82. CHOLECALCIFEROL [Interacting]
     Active Substance: CHOLECALCIFEROL
     Indication: Product used for unknown indication
     Dosage: 100 IU, QD (1-0-0-0)
     Route: 048
  83. CHOLECALCIFEROL [Interacting]
     Active Substance: CHOLECALCIFEROL
     Dosage: 1 DOSAGE FORM, QD
     Route: 048
  84. CHOLECALCIFEROL [Interacting]
     Active Substance: CHOLECALCIFEROL
     Dosage: 100 UNK, QD
     Route: 048
  85. PANTOZOL [Interacting]
     Active Substance: PANTOPRAZOLE SODIUM
     Indication: Product used for unknown indication
     Dosage: 40 MG, QD (1-0-0-0)
     Route: 048
  86. PANTOZOL [Interacting]
     Active Substance: PANTOPRAZOLE SODIUM
     Dosage: 40 MG, QD
     Route: 048
  87. FENTANYL [Interacting]
     Active Substance: FENTANYL
     Indication: Product used for unknown indication
     Dosage: 50 UG,QD
     Route: 048
  88. FENTANYL [Interacting]
     Active Substance: FENTANYL
     Dosage: 50 MG, QD
     Route: 048
  89. AMBROXOL HYDROCHLORIDE [Interacting]
     Active Substance: AMBROXOL HYDROCHLORIDE
     Indication: Product used for unknown indication
     Dosage: 30 GTT, PRN
     Route: 048
  90. AMBROXOL HYDROCHLORIDE [Interacting]
     Active Substance: AMBROXOL HYDROCHLORIDE
     Dosage: 30 DRP, PRN
     Route: 048
  91. SPIRIVA [Interacting]
     Active Substance: TIOTROPIUM BROMIDE MONOHYDRATE
     Indication: Product used for unknown indication
     Dosage: 18 UG, BID (36 UG, 1-0-1-0)
     Route: 055
  92. SPIRIVA [Interacting]
     Active Substance: TIOTROPIUM BROMIDE MONOHYDRATE
     Dosage: 2 DOSAGE FORM, QD
     Route: 055
  93. SPIRIVA [Interacting]
     Active Substance: TIOTROPIUM BROMIDE MONOHYDRATE
     Dosage: 1 DOSAGE FORM, QD
     Route: 055
  94. SPIRIVA [Interacting]
     Active Substance: TIOTROPIUM BROMIDE MONOHYDRATE
     Dosage: 36 UG, QD
     Route: 055
  95. SPIRIVA [Interacting]
     Active Substance: TIOTROPIUM BROMIDE MONOHYDRATE
     Dosage: 36 UG, BID
     Route: 055
  96. URSODIOL [Interacting]
     Active Substance: URSODIOL
     Indication: Product used for unknown indication
     Dosage: 500 MG, BID (1-0-1-0)
     Route: 048
  97. URSODIOL [Interacting]
     Active Substance: URSODIOL
     Dosage: 500 MG, Q12H
     Route: 048
  98. URSODIOL [Interacting]
     Active Substance: URSODIOL
     Dosage: 1000 MG, Q12H
     Route: 048
  99. CITRIC ACID MONOHYDRATE\POTASSIUM BICARBONATE\POTASSIUM CITRATE [Interacting]
     Active Substance: CITRIC ACID MONOHYDRATE\POTASSIUM BICARBONATE\POTASSIUM CITRATE
     Indication: Product used for unknown indication
     Dosage: 100 MG, QD (1-0-0-0)
     Route: 048
  100. CITRIC ACID MONOHYDRATE\POTASSIUM BICARBONATE\POTASSIUM CITRATE [Interacting]
     Active Substance: CITRIC ACID MONOHYDRATE\POTASSIUM BICARBONATE\POTASSIUM CITRATE
     Dosage: UNK
     Route: 048
  101. CITRIC ACID MONOHYDRATE\POTASSIUM BICARBONATE\POTASSIUM CITRATE [Interacting]
     Active Substance: CITRIC ACID MONOHYDRATE\POTASSIUM BICARBONATE\POTASSIUM CITRATE
     Dosage: UNK
     Route: 048
  102. CITRIC ACID MONOHYDRATE\POTASSIUM BICARBONATE\POTASSIUM CITRATE [Interacting]
     Active Substance: CITRIC ACID MONOHYDRATE\POTASSIUM BICARBONATE\POTASSIUM CITRATE
     Dosage: UNK
     Route: 065
  103. EZETIMIBE [Interacting]
     Active Substance: EZETIMIBE
     Indication: Product used for unknown indication
     Dosage: 10 MG, QD (1-0-0-0)
     Route: 048
  104. BENSERAZIDE HYDROCHLORIDE [Interacting]
     Active Substance: BENSERAZIDE HYDROCHLORIDE
     Indication: Product used for unknown indication
     Dosage: 100 MG, UNK (1-0-2.5-0) (100 MG)
     Route: 048
  105. BENSERAZIDE HYDROCHLORIDE [Interacting]
     Active Substance: BENSERAZIDE HYDROCHLORIDE
     Dosage: 100 MG, BID
     Route: 048
  106. BENSERAZIDE HYDROCHLORIDE [Interacting]
     Active Substance: BENSERAZIDE HYDROCHLORIDE
     Dosage: 100 MG, UNK (1-0-2.5-0) (100 MG
     Route: 048
  107. BENSERAZIDE HYDROCHLORIDE [Interacting]
     Active Substance: BENSERAZIDE HYDROCHLORIDE
     Dosage: 100 MG, Q12H
     Route: 048
  108. BENSERAZIDE HYDROCHLORIDE [Interacting]
     Active Substance: BENSERAZIDE HYDROCHLORIDE
     Dosage: 100 MG, Q12H
     Route: 048
  109. BENSERAZIDE HYDROCHLORIDE [Interacting]
     Active Substance: BENSERAZIDE HYDROCHLORIDE
     Dosage: 100 MG
     Route: 048
  110. BENSERAZIDE HYDROCHLORIDE [Interacting]
     Active Substance: BENSERAZIDE HYDROCHLORIDE
     Dosage: 100 MG, Q12H
     Route: 048
  111. BENSERAZIDE HYDROCHLORIDE [Interacting]
     Active Substance: BENSERAZIDE HYDROCHLORIDE
     Dosage: 200 MG (100 MG,1 IN 12 HOUR)
     Route: 065
  112. PENTAZOCINE [Interacting]
     Active Substance: PENTAZOCINE
     Indication: Product used for unknown indication
     Dosage: 90 DF, QD
     Route: 048
  113. PENTAZOCINE [Interacting]
     Active Substance: PENTAZOCINE
     Dosage: 30 GTT, TID
     Route: 048
  114. PENTAZOCINE [Interacting]
     Active Substance: PENTAZOCINE
     Dosage: 1 DOSAGE FORM, QD, (UG/L)
     Route: 048
  115. PENTAZOCINE [Interacting]
     Active Substance: PENTAZOCINE
     Dosage: 90 DOSAGE FORM, QD
     Route: 048
  116. PENTAZOCINE [Interacting]
     Active Substance: PENTAZOCINE
     Dosage: 90 DOSAGE FORM, QD
     Route: 048
  117. PENTAZOCINE [Interacting]
     Active Substance: PENTAZOCINE
     Dosage: 30 DRP, Q8H
     Route: 048
  118. PENTAZOCINE [Interacting]
     Active Substance: PENTAZOCINE
     Dosage: 1 DOSAGE FORM, QD
     Route: 048
  119. PENTAZOCINE [Interacting]
     Active Substance: PENTAZOCINE
     Dosage: 1 DOSAGE FORM, Q8H
     Route: 065
  120. PANTOPRAZOLE SODIUM [Interacting]
     Active Substance: PANTOPRAZOLE SODIUM
     Indication: Product used for unknown indication
     Dosage: 40 MG, QD
     Route: 048
  121. PANTOPRAZOLE SODIUM [Interacting]
     Active Substance: PANTOPRAZOLE SODIUM
     Dosage: 40 MG,QD, (1-0-0-0)
     Route: 048
  122. TIOTROPIUM BROMIDE [Interacting]
     Active Substance: TIOTROPIUM BROMIDE
     Indication: Product used for unknown indication
     Dosage: 2 DF, QD
     Route: 055
  123. TIOTROPIUM BROMIDE [Interacting]
     Active Substance: TIOTROPIUM BROMIDE
     Dosage: 36 UG, QD
     Route: 055
  124. TIOTROPIUM BROMIDE [Interacting]
     Active Substance: TIOTROPIUM BROMIDE
     Dosage: 18 UG, BID
     Route: 055
  125. TIOTROPIUM BROMIDE [Interacting]
     Active Substance: TIOTROPIUM BROMIDE
     Dosage: 18 UG, Q12H
     Route: 055
  126. TIOTROPIUM BROMIDE [Interacting]
     Active Substance: TIOTROPIUM BROMIDE
     Dosage: 36 UG, QD, 18 UG, BID (1-0-1-0)
     Route: 055
  127. EZETIMIBE [Suspect]
     Active Substance: EZETIMIBE
     Indication: Product used for unknown indication
     Dosage: 10 MG, QD
     Route: 048
  128. EZETIMIBE [Suspect]
     Active Substance: EZETIMIBE
     Dosage: 10 MG,QD
     Route: 048
  129. EZETIMIBE [Suspect]
     Active Substance: EZETIMIBE
     Dosage: 10 MG, QD
     Route: 048
  130. EZETIMIBE [Suspect]
     Active Substance: EZETIMIBE
     Dosage: 10 MG, QD
     Route: 048
  131. EZETIMIBE [Suspect]
     Active Substance: EZETIMIBE
     Dosage: 10 MG, QD
     Route: 048
  132. METAMIZOLE [Suspect]
     Active Substance: METAMIZOLE
     Indication: Product used for unknown indication
     Dosage: 30 GTT DROPS, Q8H
     Route: 048
  133. METAMIZOLE [Suspect]
     Active Substance: METAMIZOLE
     Dosage: 30 DRP, Q8H
     Route: 048
  134. AZATHIOPRINE [Suspect]
     Active Substance: AZATHIOPRINE
     Indication: Product used for unknown indication
     Dosage: 50 MG, QD
     Route: 048
  135. LACTULOSE [Suspect]
     Active Substance: LACTULOSE
     Indication: Product used for unknown indication
     Dosage: 1 DOSAGE FORM, QD
     Route: 048
  136. LACTULOSE [Suspect]
     Active Substance: LACTULOSE
     Dosage: 1 UNK
     Route: 048
  137. LACTULOSE [Suspect]
     Active Substance: LACTULOSE
     Dosage: 1 DOSAGE FORM, QD
     Route: 048
  138. FUROSEMIDE [Suspect]
     Active Substance: FUROSEMIDE
     Indication: Product used for unknown indication
     Dosage: 40 MG, QD
     Route: 048
  139. FUROSEMIDE [Suspect]
     Active Substance: FUROSEMIDE
     Dosage: 40 MG, QID
     Route: 048
  140. FUROSEMIDE [Suspect]
     Active Substance: FUROSEMIDE
     Dosage: 40 MG, Q6H
     Route: 048
  141. FUROSEMIDE [Suspect]
     Active Substance: FUROSEMIDE
     Dosage: 160 MG, QD
     Route: 048
  142. FUROSEMIDE [Suspect]
     Active Substance: FUROSEMIDE
     Dosage: 160 MG, QD
     Route: 048
  143. BENSERAZIDE HYDROCHLORIDE [Suspect]
     Active Substance: BENSERAZIDE HYDROCHLORIDE
     Indication: Product used for unknown indication
     Dosage: 100 MG, BID
     Route: 048
  144. SIROLIMUS [Suspect]
     Active Substance: SIROLIMUS
     Indication: Product used for unknown indication
     Dosage: 1 MG, QD
     Route: 048
  145. LACTULOSE [Concomitant]
     Active Substance: LACTULOSE
     Indication: Product used for unknown indication
     Dosage: UNK
     Route: 065
  146. FUROSEMIDE [Concomitant]
     Active Substance: FUROSEMIDE
     Indication: Product used for unknown indication
     Dosage: 160 MG, QD
     Route: 048
  147. SIMVASTATIN [Concomitant]
     Active Substance: SIMVASTATIN
     Indication: Product used for unknown indication
     Dosage: 40 MG, QD
     Route: 048
  148. BENSERAZIDE HYDROCHLORIDE [Concomitant]
     Active Substance: BENSERAZIDE HYDROCHLORIDE
     Indication: Product used for unknown indication
     Dosage: 100 MG, BID
     Route: 048
  149. AMBROXOL HYDROCHLORIDE [Concomitant]
     Active Substance: AMBROXOL HYDROCHLORIDE
     Indication: Product used for unknown indication
     Dosage: 30 DRP, PRN
     Route: 048

REACTIONS (3)
  - General physical health deterioration [Unknown]
  - Product prescribing error [Unknown]
  - Drug interaction [Unknown]

NARRATIVE: CASE EVENT DATE: 20150916
